FAERS Safety Report 6410424-9 (Version None)
Quarter: 2009Q4

REPORT INFORMATION
  Report Type: 
  Country: None (occurrence: None)
  Receive Date: 20091022
  Receipt Date: 20091012
  Transmission Date: 20100525
  Serious: Yes (Other)
  Sender: FDA-Public Use
  Company Number: US-ABBOTT-09P-163-0601920-00

PATIENT
  Sex: Female
  Weight: 73.548 kg

DRUGS (1)
  1. HUMIRA [Suspect]
     Indication: CROHN'S DISEASE
     Route: 058
     Dates: start: 20090301

REACTIONS (5)
  - LUNG DISORDER [None]
  - LYMPHOEDEMA [None]
  - NECK PAIN [None]
  - PAROTID GLAND ENLARGEMENT [None]
  - WEIGHT DECREASED [None]
